FAERS Safety Report 9081797 (Version 1)
Quarter: 2013Q1

REPORT INFORMATION
  Report Type: Spontaneous
  Country: NO (occurrence: NO)
  Receive Date: 20130130
  Receipt Date: 20130130
  Transmission Date: 20140127
  Serious: Yes (Hospitalization)
  Sender: FDA-Public Use
  Company Number: PHHY2013NO006173

PATIENT
  Age: 54 Year
  Sex: Female

DRUGS (14)
  1. OXALIPLATIN [Suspect]
     Indication: COLORECTAL CANCER METASTATIC
     Route: 042
  2. FLUOROURACIL [Suspect]
     Indication: COLORECTAL CANCER METASTATIC
  3. BEVACIZUMAB [Suspect]
     Indication: COLORECTAL CANCER METASTATIC
     Dosage: 290 MG, BIW
     Route: 042
     Dates: start: 20090209
  4. OXYNORM [Concomitant]
     Dates: start: 20090205
  5. CONVALLARIA MAJAL W/CRATAEG LAEVIG/PROXYPHYLL [Concomitant]
  6. MEDROL [Concomitant]
     Dates: start: 20090205
  7. FRAGMIN [Concomitant]
     Dates: start: 20090331
  8. OXYCONTIN [Concomitant]
     Dates: start: 20090205, end: 20090406
  9. MORPHINE [Concomitant]
     Dates: start: 20090406
  10. DUPHALAC [Concomitant]
     Dates: start: 20090114, end: 20090331
  11. DIURAL [Concomitant]
     Dates: start: 20090406
  12. SOMAC [Concomitant]
     Dates: start: 20090406
  13. MULTIVITAMINS [Concomitant]
  14. PANODIL [Concomitant]
     Dates: start: 20081002

REACTIONS (3)
  - Femoral neck fracture [Recovered/Resolved with Sequelae]
  - Febrile neutropenia [Recovered/Resolved]
  - Deep vein thrombosis [Not Recovered/Not Resolved]
